FAERS Safety Report 21212510 (Version 1)
Quarter: 2022Q3

REPORT INFORMATION
  Report Type: Spontaneous
  Country: US (occurrence: None)
  Receive Date: 20220812
  Receipt Date: 20220812
  Transmission Date: 20221027
  Serious: Yes (Other)
  Sender: FDA-Public Use
  Company Number: None

PATIENT
  Age: 64 Year
  Sex: Female
  Weight: 56.25 kg

DRUGS (13)
  1. CEFDINIR [Suspect]
     Active Substance: CEFDINIR
     Indication: Sinusitis
     Dates: start: 20220808, end: 20220812
  2. FLUTICASONE [Concomitant]
     Active Substance: FLUTICASONE
  3. Cetrizine tablets [Concomitant]
  4. ATENOLOL [Concomitant]
     Active Substance: ATENOLOL
  5. HYDROCHLOROTHIAZIDE\TRIAMTERENE [Concomitant]
     Active Substance: HYDROCHLOROTHIAZIDE\TRIAMTERENE
  6. SIMVASTATIN [Concomitant]
     Active Substance: SIMVASTATIN
  7. YUVAFEM [Concomitant]
     Active Substance: ESTRADIOL HEMIHYDRATE
  8. Medroxypr [Concomitant]
  9. ASPIRIN [Concomitant]
     Active Substance: ASPIRIN
  10. FLAXSEED [Concomitant]
     Active Substance: FLAX SEED
  11. VITAMINS [Concomitant]
     Active Substance: VITAMINS
  12. CALCIUM [Concomitant]
     Active Substance: CALCIUM
  13. COLLAGEN [Concomitant]
     Active Substance: COLLAGEN

REACTIONS (5)
  - Flatulence [None]
  - Muscle spasms [None]
  - Abdominal distension [None]
  - Haematochezia [None]
  - Diarrhoea [None]

NARRATIVE: CASE EVENT DATE: 20220812
